FAERS Safety Report 15172338 (Version 5)
Quarter: 2018Q3

REPORT INFORMATION
  Report Type: Spontaneous
  Country: CA (occurrence: CA)
  Receive Date: 20180720
  Receipt Date: 20180910
  Transmission Date: 20181010
  Serious: Yes (Other)
  Sender: FDA-Public Use
  Company Number: CA-PFIZER INC-2018287024

PATIENT
  Age: 67 Year
  Sex: Female

DRUGS (2)
  1. TROMBOJECT [Concomitant]
     Indication: SCLEROTHERAPY
     Dosage: 4 ML, SINGLE
     Route: 042
     Dates: start: 20180626, end: 20180626
  2. BACTERIOSTATIC SODIUM CHLORIDE [Suspect]
     Active Substance: SODIUM CHLORIDE
     Indication: VEHICLE SOLUTION USE
     Dosage: 7 ML, SINGLE
     Route: 042
     Dates: start: 20180626, end: 20180626

REACTIONS (5)
  - Necrotising soft tissue infection [Unknown]
  - Paraesthesia [Recovered/Resolved]
  - Injection site swelling [Unknown]
  - Injection site pain [Recovered/Resolved with Sequelae]
  - Product odour abnormal [Recovered/Resolved with Sequelae]

NARRATIVE: CASE EVENT DATE: 20180626
